FAERS Safety Report 16801349 (Version 1)
Quarter: 2019Q3

REPORT INFORMATION
  Report Type: Spontaneous
  Country: JP (occurrence: JP)
  Receive Date: 20190912
  Receipt Date: 20190912
  Transmission Date: 20191005
  Serious: Yes (Hospitalization)
  Sender: FDA-Public Use
  Company Number: JP-PFIZER INC-2019358121

PATIENT
  Age: 87 Year
  Sex: Male

DRUGS (8)
  1. CEFTRIAXONE SODIUM BAG 1G PFIZER [Suspect]
     Active Substance: CEFTRIAXONE SODIUM
     Indication: URINARY TRACT INFECTION
     Dosage: 1 G, 2X/DAY
     Route: 041
     Dates: start: 20190731, end: 20190809
  2. MEROPENEM. [Concomitant]
     Active Substance: MEROPENEM
     Indication: URINARY TRACT INFECTION
     Dosage: 0.5 G, 2X/DAY
     Route: 041
     Dates: start: 20190809, end: 20190810
  3. PHYSIOLOGICAL SALINE SOLUTION [Concomitant]
     Active Substance: SODIUM CHLORIDE
  4. NICORANDIL [Concomitant]
     Active Substance: NICORANDIL
  5. SILODOSIN. [Concomitant]
     Active Substance: SILODOSIN
  6. MEMARY [Concomitant]
     Active Substance: MEMANTINE HYDROCHLORIDE
  7. TULOBUTEROL [Concomitant]
     Active Substance: TULOBUTEROL
  8. SOLDEM 3A [Concomitant]
     Active Substance: CARBOHYDRATES\POTASSIUM CHLORIDE\SODIUM CHLORIDE\SODIUM LACTATE

REACTIONS (3)
  - C-reactive protein increased [Recovered/Resolved]
  - Fall [Recovered/Resolved]
  - White blood cell count increased [Recovered/Resolved]

NARRATIVE: CASE EVENT DATE: 2019
